FAERS Safety Report 8259616-7 (Version None)
Quarter: 2012Q2

REPORT INFORMATION
  Report Type: 
  Country: None (occurrence: None)
  Receive Date: 20120404
  Receipt Date: 20120329
  Transmission Date: 20120825
  Serious: Yes (Other)
  Sender: FDA-Public Use
  Company Number: PHEH2012US006935

PATIENT
  Sex: Male

DRUGS (7)
  1. NUVIGIL [Concomitant]
  2. OLEPTRO [Concomitant]
  3. LAMICTAL [Concomitant]
  4. TEGRETOL-XR [Suspect]
     Dosage: 400 MG, BID
  5. NIFEDIPINE [Concomitant]
  6. NEXIUM [Concomitant]
  7. TOPROL-XL [Concomitant]

REACTIONS (2)
  - FALL [None]
  - HEAD INJURY [None]
